FAERS Safety Report 4672786-2 (Version None)
Quarter: 2005Q2

REPORT INFORMATION
  Report Type: 
  Country: None (occurrence: None)
  Receive Date: 20050523
  Receipt Date: 20050517
  Transmission Date: 20051028
  Serious: Yes (Death, Hospitalization)
  Sender: FDA-Public Use
  Company Number: HQWYE698015SEP03

PATIENT
  Age: 54 Year
  Sex: Male

DRUGS (6)
  1. CYCLOSPORINE [Suspect]
     Indication: PROPHYLAXIS AGAINST TRANSPLANT REJECTION
     Dosage: 225 MG 1X PER  1 DAY, ORAL
     Route: 048
     Dates: start: 20010515, end: 20041117
  2. MYCOPHENOLATE MOFETIL (MYCOPHENOLATE MOFETIL, ) [Suspect]
     Indication: IMMUNOSUPPRESSION
     Dosage: 1500 MG 1X PER 1 DAY ORAL
     Route: 048
     Dates: start: 20010816
  3. PREDNISONE [Suspect]
     Indication: IMMUNOSUPPRESSION
     Dosage: SEE IMAGE, ORAL
     Route: 048
     Dates: start: 20010612, end: 20041019
  4. PREDNISONE [Suspect]
     Indication: IMMUNOSUPPRESSION
     Dosage: SEE IMAGE, ORAL
     Route: 048
     Dates: start: 20041020, end: 20050513
  5. NIFEDIPINE [Concomitant]
  6. DOXAZOSIN (DOXAZOSIN) [Concomitant]

REACTIONS (10)
  - ASTHENIA [None]
  - ASTROCYTOMA MALIGNANT [None]
  - BRAIN OEDEMA [None]
  - COMA [None]
  - DIPLOPIA [None]
  - DIZZINESS [None]
  - HEADACHE [None]
  - MALIGNANT NEOPLASM PROGRESSION [None]
  - PAPILLOEDEMA [None]
  - VISUAL ACUITY REDUCED [None]
